FAERS Safety Report 13100524 (Version 1)
Quarter: 2017Q1

REPORT INFORMATION
  Report Type: Spontaneous
  Country: US (occurrence: US)
  Receive Date: 20170109
  Receipt Date: 20170109
  Transmission Date: 20170428
  Serious: Yes (Other)
  Sender: FDA-Public Use
  Company Number: None

PATIENT
  Age: 70 Year
  Sex: Male
  Weight: 75.6 kg

DRUGS (7)
  1. VITAMIN B [Concomitant]
     Active Substance: VITAMIN B
  2. CRESTOR [Concomitant]
     Active Substance: ROSUVASTATIN CALCIUM
  3. VITAMIN D [Concomitant]
     Active Substance: CHOLECALCIFEROL
  4. ZETIA [Concomitant]
     Active Substance: EZETIMIBE
  5. VITAMIN C [Concomitant]
     Active Substance: ASCORBIC ACID
  6. LOW DOSE ASPIRIN [Concomitant]
     Active Substance: ASPIRIN
  7. ROSUVASTATIN. [Suspect]
     Active Substance: ROSUVASTATIN
     Indication: CARDIAC DISORDER
     Dosage: ?          QUANTITY:1 TABLET(S);?
     Route: 048

REACTIONS (5)
  - Product substitution issue [None]
  - Sinus pain [None]
  - Rhinorrhoea [None]
  - Sneezing [None]
  - Sinus congestion [None]
